FAERS Safety Report 4590839-4 (Version None)
Quarter: 2005Q1

REPORT INFORMATION
  Report Type: 
  Country: None (occurrence: None)
  Receive Date: 20050225
  Receipt Date: 20050214
  Transmission Date: 20050727
  Serious: Yes (Other)
  Sender: FDA-Public Use
  Company Number: GB-JNJFOC-20050203942

PATIENT
  Age: 11 Year
  Sex: Male

DRUGS (6)
  1. CONCERTA [Suspect]
     Indication: ATTENTION DEFICIT/HYPERACTIVITY DISORDER
     Route: 065
  2. ACETAMINOPHEN [Concomitant]
     Route: 065
  3. VOLTEROL [Concomitant]
     Route: 065
  4. MORPHINE [Concomitant]
     Route: 065
  5. GABAPENTIN [Concomitant]
     Route: 065
  6. RITALIN [Concomitant]
     Route: 065

REACTIONS (1)
  - CONFUSIONAL STATE [None]
